FAERS Safety Report 5809697-2 (Version None)
Quarter: 2008Q3

REPORT INFORMATION
  Report Type: 
  Country: None (occurrence: None)
  Receive Date: 20080711
  Receipt Date: 20080711
  Transmission Date: 20090109
  Serious: Yes (Life-Threatening, Hospitalization, Disabling, Other)
  Sender: FDA-Public Use
  Company Number: None

PATIENT
  Age: 46 Year
  Sex: Male
  Weight: 81.6475 kg

DRUGS (1)
  1. IBUPROFEN TABLETS [Suspect]
     Indication: BACK PAIN
     Dosage: 2400MG 3 TIMES DAY BUCCAL
     Route: 002
     Dates: start: 20051102, end: 20051129

REACTIONS (2)
  - ARRHYTHMIA [None]
  - CARDIAC DISORDER [None]
